FAERS Safety Report 5945413-1 (Version None)
Quarter: 2008Q4

REPORT INFORMATION
  Report Type: 
  Country: None (occurrence: None)
  Receive Date: 20081107
  Receipt Date: 20081028
  Transmission Date: 20090506
  Serious: Yes (Other)
  Sender: FDA-Public Use
  Company Number: US-PFIZER INC-2008046664

PATIENT
  Sex: Female
  Weight: 60.8 kg

DRUGS (4)
  1. LYRICA [Suspect]
     Indication: BACK PAIN
     Dates: start: 20080201, end: 20080501
  2. LYRICA [Suspect]
     Indication: NEURALGIA
  3. LYRICA [Suspect]
     Indication: NEUROPATHY PERIPHERAL
  4. SEPTRA [Concomitant]
     Indication: INFECTION

REACTIONS (18)
  - AGEUSIA [None]
  - ALOPECIA [None]
  - ANOREXIA [None]
  - ANOSMIA [None]
  - BACK PAIN [None]
  - BODY HEIGHT DECREASED [None]
  - DEPRESSED MOOD [None]
  - DYSPHAGIA [None]
  - GAIT DISTURBANCE [None]
  - GASTRITIS [None]
  - HAEMATURIA [None]
  - MADAROSIS [None]
  - NAIL DISORDER [None]
  - PREMATURE AGEING [None]
  - SOCIAL AVOIDANT BEHAVIOUR [None]
  - STRESS [None]
  - URINARY TRACT INFECTION [None]
  - WEIGHT DECREASED [None]
